FAERS Safety Report 13158603 (Version 1)
Quarter: 2017Q1

REPORT INFORMATION
  Report Type: Spontaneous
  Country: IT (occurrence: IT)
  Receive Date: 20170127
  Receipt Date: 20170127
  Transmission Date: 20170428
  Serious: Yes (Death, Other)
  Sender: FDA-Public Use
  Company Number: IT-PFIZER INC-2017032794

PATIENT
  Age: 44 Year
  Sex: Male

DRUGS (3)
  1. SUNITINIB MALATE. [Suspect]
     Active Substance: SUNITINIB MALATE
     Dosage: 50 MG, CYCLIC
     Dates: start: 201409, end: 201506
  2. SUNITINIB MALATE. [Suspect]
     Active Substance: SUNITINIB MALATE
     Dosage: 50 MG, CYCLIC
     Dates: start: 201308
  3. SUNITINIB MALATE. [Suspect]
     Active Substance: SUNITINIB MALATE
     Indication: RENAL CELL CARCINOMA
     Dosage: 50 MG, CYCLIC DAILY, 4 WEEKS ON AND 2 WEEKS OFF
     Dates: start: 20130107

REACTIONS (9)
  - Death [Fatal]
  - Haematuria [Unknown]
  - Hypothyroidism [Unknown]
  - Urinary tract infection [Unknown]
  - Performance status decreased [Unknown]
  - Blood creatinine increased [Unknown]
  - Hydronephrosis [Unknown]
  - Palmar-plantar erythrodysaesthesia syndrome [Unknown]
  - Abdominal pain [Unknown]
